FAERS Safety Report 12779332 (Version 2)
Quarter: 2016Q4

REPORT INFORMATION
  Report Type: Report from Study
  Country: GB (occurrence: GB)
  Receive Date: 20160926
  Receipt Date: 20161026
  Transmission Date: 20170207
  Serious: Yes (Hospitalization)
  Sender: FDA-Public Use
  Company Number: GB-ROCHE-1753602

PATIENT
  Sex: Male
  Weight: 70 kg

DRUGS (17)
  1. DIAMORPHINE [Concomitant]
     Active Substance: DIACETYLMORPHINE
     Indication: PAIN
     Route: 058
     Dates: start: 20160322
  2. OBINUTUZUMAB [Suspect]
     Active Substance: OBINUTUZUMAB
     Indication: CHRONIC LYMPHOCYTIC LEUKAEMIA
     Dosage: LAST DOSE PRIOR TO FIRST OCCURRENCE ON 12/APR/2016?LAST DOSE PRIOR TO SECOND OCCURRENCE ON 19/JUL/20
     Route: 042
     Dates: start: 20160405, end: 20160913
  3. KETAMINE [Concomitant]
     Active Substance: KETAMINE
     Indication: PAIN
     Route: 058
     Dates: start: 20160323
  4. ALLOPURINOL. [Concomitant]
     Active Substance: ALLOPURINOL
     Indication: TUMOUR LYSIS SYNDROME
     Route: 048
     Dates: start: 20160323
  5. ACICLOVIR [Concomitant]
     Active Substance: ACYCLOVIR
     Route: 048
     Dates: start: 20120928
  6. COTRIMOXAZOLE [Concomitant]
     Active Substance: SULFAMETHOXAZOLE\TRIMETHOPRIM
     Indication: INFECTION PROPHYLAXIS
     Route: 048
     Dates: start: 20160404
  7. ACICLOVIR [Concomitant]
     Active Substance: ACYCLOVIR
     Indication: INFECTION PROPHYLAXIS
     Route: 048
     Dates: start: 20160404
  8. IBRUTINIB [Suspect]
     Active Substance: IBRUTINIB
     Indication: CHRONIC LYMPHOCYTIC LEUKAEMIA
     Dosage: LAST DOSE GIVEN 420?MOST RECENT DOSE: 18/APR/2016?DOSE HELD ON 05/AUG/2016
     Route: 048
     Dates: start: 20160404
  9. LEVOPROMAZINE [Concomitant]
     Active Substance: LEVOMEPROMAZINE
     Indication: NAUSEA
     Route: 058
     Dates: start: 20160322
  10. BIOTENE MOUTHWASH [Concomitant]
     Active Substance: CETYLPYRIDINIUM CHLORIDE
     Route: 048
     Dates: start: 20160601
  11. AMBISOME [Concomitant]
     Active Substance: AMPHOTERICIN B
     Route: 042
     Dates: start: 20160808, end: 20160815
  12. NYSTAN [Concomitant]
     Active Substance: NYSTATIN
     Route: 048
     Dates: start: 20160516
  13. ATORVASTATIN [Concomitant]
     Active Substance: ATORVASTATIN
     Indication: HYPERCHOLESTEROLAEMIA
     Route: 048
     Dates: start: 20121107
  14. ALLOPURINOL. [Concomitant]
     Active Substance: ALLOPURINOL
     Route: 048
     Dates: start: 20120813
  15. DOCUSATE SODIUM. [Concomitant]
     Active Substance: DOCUSATE SODIUM
     Indication: CONSTIPATION
     Route: 048
     Dates: start: 20160302
  16. COTRIMOXAZOLE [Concomitant]
     Active Substance: SULFAMETHOXAZOLE\TRIMETHOPRIM
     Route: 048
     Dates: start: 20120928
  17. FILGRASTIM [Suspect]
     Active Substance: FILGRASTIM
     Indication: NEUTROPHIL COUNT DECREASED
     Dosage: FREQUENCY : STARTED AS ONCE OFF, THEN WEEKLY AND THEN DAILY?MOST RECENT DOSE : 05/AUG/2016
     Route: 058
     Dates: start: 20160513

REACTIONS (4)
  - Hodgkin^s disease [Recovered/Resolved]
  - Fatigue [Not Recovered/Not Resolved]
  - Pyrexia [Recovered/Resolved]
  - Pyrexia [Not Recovered/Not Resolved]

NARRATIVE: CASE EVENT DATE: 20160419
